FAERS Safety Report 8883172 (Version 1)
Quarter: 2012Q4

REPORT INFORMATION
  Report Type: 
  Country: US (occurrence: US)
  Receive Date: 20121102
  Receipt Date: 20121102
  Transmission Date: 20130627
  Serious: No
  Sender: FDA-Public Use
  Company Number: US-009507513-1208USA001280

PATIENT
  Sex: Male
  Weight: 113.83 kg

DRUGS (8)
  1. PEG-INTRON [Suspect]
     Dosage: 150 MCG/0.5 ML, INJECT 150 MCG SUBCUTANEOUSLY EVERY WEEK, REDIPEN PEGINTRON (4 SYR/PK)
     Route: 058
  2. VICTRELIS [Suspect]
     Dosage: 200 UNK, UNK
  3. RIBAPAK [Suspect]
     Dosage: 800 DF, qd
  4. CYMBALTA [Concomitant]
     Dosage: 20 UNK, UNK
  5. NAPROSYN [Concomitant]
     Dosage: 250 UNK, UNK
  6. LISINOPRIL [Concomitant]
     Dosage: UNK mg, UNK
  7. PRILOSEC [Concomitant]
     Dosage: 10 UNK, UNK
  8. MINERALS (UNSPECIFIED) (+) VITAMINS (UNSPECIFIED) [Concomitant]

REACTIONS (2)
  - Hypotension [Unknown]
  - Dizziness [Unknown]
